FAERS Safety Report 19433179 (Version 1)
Quarter: 2021Q2

REPORT INFORMATION
  Report Type: Spontaneous
  Country: SE (occurrence: NL)
  Receive Date: 20210617
  Receipt Date: 20210617
  Transmission Date: 20210717
  Serious: Yes (Congenital Anomaly, Other)
  Sender: FDA-Public Use
  Company Number: SE-PFIZER INC-2021661227

PATIENT

DRUGS (3)
  1. VALPROIC ACID. [Suspect]
     Active Substance: VALPROIC ACID
     Dosage: DURING 2ND TRIMESTER
     Route: 064
  2. PHENYTOIN SODIUM. [Suspect]
     Active Substance: PHENYTOIN SODIUM
     Dosage: DURING 1ST AND 2ND TRIMESTER
     Route: 064
  3. VALPROIC ACID. [Suspect]
     Active Substance: VALPROIC ACID
     Dosage: 2000 MG, ONCE DAILY DURING 1ST TRIMESTER
     Route: 064

REACTIONS (2)
  - Maternal exposure during pregnancy [Unknown]
  - Spina bifida [Unknown]
